FAERS Safety Report 5233371-7 (Version None)
Quarter: 2007Q1

REPORT INFORMATION
  Report Type: 
  Country: None (occurrence: None)
  Receive Date: 20070207
  Receipt Date: 20070207
  Transmission Date: 20070707
  Serious: No
  Sender: FDA-Public Use
  Company Number: None

PATIENT
  Age: 52 Year
  Sex: Male

DRUGS (10)
  1. NOVOLOG MIX 70/30 [Suspect]
     Indication: DIABETES MELLITUS
     Dosage: USE UP TO 50 UNITS DAILY
     Dates: start: 20060417
  2. LIPITOR [Concomitant]
  3. ZETIA [Concomitant]
  4. ALTACE [Concomitant]
  5. METFORMIN HCL [Concomitant]
  6. ACEBUTOLOL [Concomitant]
  7. DIOVAN HCT [Concomitant]
  8. WARFARIN SODIUM [Concomitant]
  9. CITALOPRAM HYDROBROMIDE [Concomitant]
  10. XALATAN [Concomitant]

REACTIONS (3)
  - BLOOD GLUCOSE INCREASED [None]
  - DRUG INEFFECTIVE [None]
  - PHARMACEUTICAL PRODUCT COMPLAINT [None]
